FAERS Safety Report 7653109-3 (Version None)
Quarter: 2011Q3

REPORT INFORMATION
  Report Type: 
  Country: None (occurrence: None)
  Receive Date: 20110803
  Receipt Date: 20110728
  Transmission Date: 20111222
  Serious: Yes (Death)
  Sender: FDA-Public Use
  Company Number: US-PFIZER INC-2011174591

PATIENT
  Sex: Female

DRUGS (1)
  1. VFEND [Suspect]
     Indication: LUNG INFECTION
     Dosage: 200 MG, 2X/DAY
     Dates: start: 20110715

REACTIONS (1)
  - DEATH [None]
